FAERS Safety Report 10247344 (Version 1)
Quarter: 2014Q1

REPORT INFORMATION
  Report Type: Spontaneous
  Country: US (occurrence: None)
  Receive Date: 20140306
  Receipt Date: 20140306
  Transmission Date: 20141002
  Serious: Yes (Hospitalization)
  Sender: FDA-Public Use
  Company Number: 163-21880-13032120

PATIENT
  Age: 71 Year
  Sex: Male
  Weight: 93.44 kg

DRUGS (15)
  1. REVLIMID (LENALIDOMIDE) (CAPSULES) [Suspect]
     Indication: PLASMA CELL MYELOMA
     Dosage: 25 MG, 21 IN 21 D, PO
     Route: 048
     Dates: start: 20121206
  2. DECADRON (DEXAMETHASONE) (CAPSULES) [Concomitant]
  3. LEVOXYL (LEVOTHYROXINE SODIUM) (UNKNOWN) [Concomitant]
  4. BACLOFEN (UNKNOWN) [Concomitant]
  5. ZOMETA (ZOLEDRONIC ACID) (UNKNOWN) [Concomitant]
  6. ALENDRONATE (ALENDRONATE SODIUM) (UNKNOWN) [Concomitant]
  7. ALBUTEROL (SALBUTAMOL) (UNKNOWN) [Concomitant]
  8. TESSALON PERLES (BENZONATATE) (UNKNOWN) [Concomitant]
  9. BISACODYL (SUPPOSITORY) [Concomitant]
  10. CALCIUM CARBONATE (UNKNOWN) [Concomitant]
  11. CHLORPHENIRAMINE (UNKNOWN) [Concomitant]
  12. HYDROCODONE (UNKNOWN) [Concomitant]
  13. MAGNESIUM OXIDE (UNKNOWN) [Concomitant]
  14. MEGACE (MEGESTROL ACETATE) (UNKNOWN) [Concomitant]
  15. MIRALAX (MACROGOL) (UNKNOWN) [Concomitant]

REACTIONS (2)
  - Pneumonia [None]
  - Fatigue [None]
